FAERS Safety Report 12386982 (Version 2)
Quarter: 2016Q2

REPORT INFORMATION
  Report Type: Spontaneous
  Country: IT (occurrence: IT)
  Receive Date: 20160519
  Receipt Date: 20160527
  Transmission Date: 20160815
  Serious: Yes (Other)
  Sender: FDA-Public Use
  Company Number: IT-TEVA-660280ACC

PATIENT
  Age: 14 Year
  Sex: Female
  Weight: 75 kg

DRUGS (9)
  1. PARACETAMOL [Suspect]
     Active Substance: ACETAMINOPHEN
     Indication: INTENTIONAL SELF-INJURY
     Dosage: 14 G TOTAL
     Route: 048
     Dates: start: 20160411, end: 20160411
  2. VERMOX [Suspect]
     Active Substance: MEBENDAZOLE
     Indication: INTENTIONAL SELF-INJURY
     Dosage: TOTAL
     Route: 048
     Dates: start: 20160411, end: 20160411
  3. OKI - DOMPE FARMACEUTICI S.P.A. [Suspect]
     Active Substance: KETOPROFEN LYSINE
     Indication: INTENTIONAL SELF-INJURY
     Dosage: 20 DF TOTAL
     Route: 048
     Dates: start: 20160411, end: 20160411
  4. OMEPRAZOLE. [Suspect]
     Active Substance: OMEPRAZOLE
     Indication: INTENTIONAL SELF-INJURY
     Dosage: TOTAL
     Route: 048
     Dates: start: 20160411, end: 20160411
  5. LEVOFLOXACIN. [Suspect]
     Active Substance: LEVOFLOXACIN
     Indication: INTENTIONAL SELF-INJURY
     Dosage: 1000 MG TOTAL
     Route: 048
     Dates: start: 20160411, end: 20160411
  6. ARVENUM - 500 MG COMPRESSE RIVESTITE CON FILM [Suspect]
     Active Substance: DIOSMIN
     Indication: INTENTIONAL SELF-INJURY
     Dosage: TOTAL
     Route: 048
     Dates: start: 20160411, end: 20160411
  7. AMOXICILLIN+CLAVULANIC ACID [Suspect]
     Active Substance: AMOXICILLIN\CLAVULANIC ACID
     Indication: INTENTIONAL SELF-INJURY
     Dosage: 2 DF TOTAL
     Route: 048
     Dates: start: 20160411, end: 20160411
  8. CETIRIZINE [Suspect]
     Active Substance: CETIRIZINE HYDROCHLORIDE
     Indication: INTENTIONAL SELF-INJURY
     Dosage: 90 MG TOTAL
     Route: 048
     Dates: start: 20160411, end: 20160411
  9. CEFIXIME. [Suspect]
     Active Substance: CEFIXIME
     Indication: INTENTIONAL SELF-INJURY
     Dosage: TOTAL
     Route: 048
     Dates: start: 20160411, end: 20160411

REACTIONS (8)
  - Vertigo [Unknown]
  - Abdominal pain [Unknown]
  - Intentional self-injury [Unknown]
  - Somnolence [Unknown]
  - Tongue coated [Unknown]
  - Drug abuse [Unknown]
  - Asthenia [Unknown]
  - Poisoning [Unknown]

NARRATIVE: CASE EVENT DATE: 201604
